FAERS Safety Report 5466251-2 (Version None)
Quarter: 2007Q3

REPORT INFORMATION
  Report Type: 
  Country: None (occurrence: None)
  Receive Date: 20070919
  Receipt Date: 20070904
  Transmission Date: 20080115
  Serious: Yes (Other)
  Sender: FDA-Public Use
  Company Number: 2007PV000036

PATIENT
  Age: 52 Year
  Sex: Male

DRUGS (6)
  1. CYTARABINE [Suspect]
     Indication: CENTRAL NERVOUS SYSTEM LEUKAEMIA
     Dosage: 50 MG; QM; INTH; 50 MG; 1X; INTH
     Route: 037
     Dates: start: 20051201, end: 20060401
  2. CYTARABINE [Suspect]
     Indication: CHRONIC MYELOID LEUKAEMIA
     Dosage: 50 MG; QM; INTH; 50 MG; 1X; INTH
     Route: 037
     Dates: start: 20051201, end: 20060401
  3. CYTARABINE [Suspect]
     Indication: CENTRAL NERVOUS SYSTEM LEUKAEMIA
     Dosage: 50 MG; QM; INTH; 50 MG; 1X; INTH
     Route: 037
     Dates: start: 20070201, end: 20070201
  4. CYTARABINE [Suspect]
     Indication: CHRONIC MYELOID LEUKAEMIA
     Dosage: 50 MG; QM; INTH; 50 MG; 1X; INTH
     Route: 037
     Dates: start: 20070201, end: 20070201
  5. IMATINIB [Concomitant]
  6. INTERFERON [Concomitant]

REACTIONS (2)
  - PARAESTHESIA [None]
  - POST PROCEDURAL FISTULA [None]
